FAERS Safety Report 6897337-3 (Version None)
Quarter: 2010Q3

REPORT INFORMATION
  Report Type: 
  Country: None (occurrence: None)
  Receive Date: 20100729
  Receipt Date: 20100714
  Transmission Date: 20110219
  Serious: Yes (Hospitalization)
  Sender: FDA-Public Use
  Company Number: 2010RR-36198

PATIENT
  Age: 58 Year
  Sex: Female

DRUGS (3)
  1. ACETAMINOPHEN [Suspect]
     Indication: PRODUCT USED FOR UNKNOWN INDICATION
     Dosage: 1 G, QID, ORAL
     Route: 048
  2. CODEINE PHOSPHATE AND ACETAMINOPHEN [Suspect]
     Indication: BACK PAIN
     Dosage: 1 DF, BID, ORAL
     Route: 048
     Dates: start: 20070127, end: 20070128
  3. LEVOTHYROXINE SODIUM [Concomitant]

REACTIONS (3)
  - AGITATION [None]
  - DRY MOUTH [None]
  - THIRST [None]
